FAERS Safety Report 9435664 (Version 3)
Quarter: 2014Q1

REPORT INFORMATION
  Report Type: Spontaneous
  Country: US (occurrence: US)
  Receive Date: 20130730
  Receipt Date: 20140207
  Transmission Date: 20141002
  Serious: Yes (Death, Hospitalization)
  Sender: FDA-Public Use
  Company Number: 149783

PATIENT
  Age: 67 Year
  Sex: Female

DRUGS (1)
  1. CYTARABINE [Suspect]
     Indication: MYELOID LEUKAEMIA
     Dates: start: 20130319

REACTIONS (5)
  - Candida infection [None]
  - Febrile neutropenia [None]
  - Mucosal inflammation [None]
  - Bacterial disease carrier [None]
  - Culture urine positive [None]
